FAERS Safety Report 13645136 (Version 1)
Quarter: 2017Q2

REPORT INFORMATION
  Report Type: Spontaneous
  Country: US (occurrence: US)
  Receive Date: 20170612
  Receipt Date: 20170612
  Transmission Date: 20170830
  Serious: No
  Sender: FDA-Public Use
  Company Number: US-ROCHE-1369895

PATIENT
  Age: 70 Year
  Sex: Female

DRUGS (2)
  1. XELODA [Suspect]
     Active Substance: CAPECITABINE
     Indication: BREAST CANCER METASTATIC
     Dosage: 3 TABLETS AM; 3 TABLETS PM; 1 WK ON, 1 WK OFF
     Route: 048
     Dates: end: 201403
  2. XELODA [Suspect]
     Active Substance: CAPECITABINE
     Dosage: 3 TABS AM, 2 TABS PM; 1 WK ON, 1 WK OFF
     Route: 048

REACTIONS (9)
  - Drug ineffective [Unknown]
  - Palmar-plantar erythrodysaesthesia syndrome [Not Recovered/Not Resolved]
  - Neoplasm progression [Not Recovered/Not Resolved]
  - Skin discolouration [Not Recovered/Not Resolved]
  - Erythema [Not Recovered/Not Resolved]
  - Fatigue [Recovered/Resolved]
  - Hair growth abnormal [Not Recovered/Not Resolved]
  - Lymphoedema [Not Recovered/Not Resolved]
  - Skin fissures [Not Recovered/Not Resolved]
